FAERS Safety Report 5659279-0 (Version None)
Quarter: 2008Q1

REPORT INFORMATION
  Report Type: 
  Country: None (occurrence: None)
  Receive Date: 20080311
  Receipt Date: 20070618
  Transmission Date: 20080703
  Serious: Yes (Other)
  Sender: FDA-Public Use
  Company Number: US-BAYER-200711930BCC

PATIENT
  Age: 42 Year
  Sex: Female

DRUGS (3)
  1. ALEVE [Suspect]
     Indication: DRUG USE FOR UNKNOWN INDICATION
     Route: 048
  2. LEXAPRO [Suspect]
     Indication: DEPRESSION
     Dosage: TOTAL DAILY DOSE: 10 MG  UNIT DOSE: 10 MG
     Route: 048
     Dates: start: 20050101, end: 20070201
  3. ADVIL [Suspect]
     Indication: DRUG USE FOR UNKNOWN INDICATION

REACTIONS (5)
  - ANGIOEDEMA [None]
  - DRUG HYPERSENSITIVITY [None]
  - DYSPNOEA [None]
  - PHARYNGEAL OEDEMA [None]
  - SWELLING FACE [None]
